FAERS Safety Report 7244834-7 (Version None)
Quarter: 2011Q1

REPORT INFORMATION
  Report Type: 
  Country: None (occurrence: None)
  Receive Date: 20110126
  Receipt Date: 20110122
  Transmission Date: 20110831
  Serious: No
  Sender: FDA-Public Use
  Company Number: US-PFIZER INC-2011015736

PATIENT
  Sex: Female
  Weight: 54.4 kg

DRUGS (1)
  1. LYRICA [Suspect]
     Indication: COMPLEX REGIONAL PAIN SYNDROME
     Dosage: 50 MG, 1X/DAY
     Route: 048
     Dates: start: 20110121

REACTIONS (7)
  - PAIN [None]
  - CRYING [None]
  - MUSCLE SPASMS [None]
  - SEDATION [None]
  - PYREXIA [None]
  - MUSCLE TWITCHING [None]
  - TREMOR [None]
